FAERS Safety Report 15685160 (Version 1)
Quarter: 2018Q4

REPORT INFORMATION
  Report Type: Spontaneous
  Country: US (occurrence: US)
  Receive Date: 20181204
  Receipt Date: 20181204
  Transmission Date: 20190205
  Serious: No
  Sender: FDA-Public Use
  Company Number: US-ANTARES PHARMA, INC.-2018-SPO-MX-0446

PATIENT
  Age: 49 Year
  Sex: Female

DRUGS (1)
  1. OTREXUP [Suspect]
     Active Substance: METHOTREXATE
     Indication: RHEUMATOID ARTHRITIS
     Dosage: 15 MG/0.4ML, QWK
     Route: 058
     Dates: end: 20180810

REACTIONS (9)
  - Pain [Unknown]
  - Exposure to extreme temperature [Unknown]
  - Malaise [Unknown]
  - Neuropathy peripheral [Unknown]
  - Asthenia [Unknown]
  - Joint stiffness [Unknown]
  - Product dose omission [Unknown]
  - Nausea [Unknown]
  - Vision blurred [Unknown]

NARRATIVE: CASE EVENT DATE: 201808
